FAERS Safety Report 6453707-9 (Version None)
Quarter: 2009Q4

REPORT INFORMATION
  Report Type: 
  Country: None (occurrence: None)
  Receive Date: 20091123
  Receipt Date: 20091123
  Transmission Date: 20100525
  Serious: Yes (Hospitalization)
  Sender: FDA-Public Use
  Company Number: None

PATIENT
  Sex: Male
  Weight: 90 kg

DRUGS (3)
  1. LAMOTRIGINE [Suspect]
     Indication: BIPOLAR DISORDER
     Dosage: 100 MG DAILY PO
     Route: 048
     Dates: start: 20090806, end: 20090906
  2. LAMOTRIGINE [Suspect]
     Indication: STREPTOCOCCUS TEST POSITIVE
     Dosage: 100 MG DAILY PO
     Route: 048
     Dates: start: 20090806, end: 20090906
  3. PENICILLIN VK [Suspect]
     Indication: PHARYNGITIS
     Dosage: 500 MG TID PO
     Route: 048
     Dates: start: 20090909, end: 20090915

REACTIONS (9)
  - BETA HAEMOLYTIC STREPTOCOCCAL INFECTION [None]
  - CHOLESTASIS [None]
  - DRUG HYPERSENSITIVITY [None]
  - DRUG RASH WITH EOSINOPHILIA AND SYSTEMIC SYMPTOMS [None]
  - HEPATIC NECROSIS [None]
  - HYPERGLYCAEMIA [None]
  - SEPSIS [None]
  - TOXIC SHOCK SYNDROME STAPHYLOCOCCAL [None]
  - TOXIC SHOCK SYNDROME STREPTOCOCCAL [None]
